FAERS Safety Report 5197970-3 (Version None)
Quarter: 2006Q4

REPORT INFORMATION
  Report Type: 
  Country: None (occurrence: None)
  Receive Date: 20061228
  Receipt Date: 20061214
  Transmission Date: 20070319
  Serious: Yes (Other)
  Sender: FDA-Public Use
  Company Number: PHBS2006US19660

PATIENT
  Age: 81 Year
  Sex: Female

DRUGS (1)
  1. VISUDYNE [Suspect]
     Indication: CHOROIDAL NEOVASCULARISATION

REACTIONS (4)
  - CHORIORETINAL DISORDER [None]
  - INJURY [None]
  - MACULOPATHY [None]
  - VISUAL ACUITY REDUCED [None]
